FAERS Safety Report 12945939 (Version 2)
Quarter: 2017Q1

REPORT INFORMATION
  Report Type: Spontaneous
  Country: JP (occurrence: JP)
  Receive Date: 20161116
  Receipt Date: 20170222
  Transmission Date: 20170428
  Serious: Yes (Other)
  Sender: FDA-Public Use
  Company Number: JP-ASTRAZENECA-2016SF14197

PATIENT
  Age: 64 Year
  Sex: Female

DRUGS (2)
  1. IRESSA [Suspect]
     Active Substance: GEFITINIB
     Indication: ADENOCARCINOMA
     Route: 048
     Dates: start: 20130723, end: 201309
  2. IRESSA [Suspect]
     Active Substance: GEFITINIB
     Indication: ADENOCARCINOMA
     Route: 048
     Dates: start: 201309, end: 20160805

REACTIONS (2)
  - Lymphangiosis carcinomatosa [Unknown]
  - Lung carcinoma cell type unspecified recurrent [Unknown]
